FAERS Safety Report 15609426 (Version 1)
Quarter: 2018Q4

REPORT INFORMATION
  Report Type: Spontaneous
  Country: DE (occurrence: DE)
  Receive Date: 20181112
  Receipt Date: 20181112
  Transmission Date: 20190205
  Serious: Yes (Congenital Anomaly)
  Sender: FDA-Public Use
  Company Number: DE-MYLANLABS-2018M1084862

PATIENT
  Sex: Male
  Weight: 3.01 kg

DRUGS (6)
  1. AMITRIPTYLINE [Suspect]
     Active Substance: AMITRIPTYLINE
     Indication: SLEEP DISORDER
     Dosage: 25 [MG/D ] 1 TRIMESTER
     Route: 064
  2. AMOXICILLIN                        /00249602/ [Concomitant]
     Active Substance: AMOXICILLIN
     Indication: SINUSITIS
     Dosage: 2250 [MG/D ]/ DURING 1ST AND 3RD TRIMESTER FOR 7 DAYS EACH
     Route: 064
  3. CITALOPRAM [Suspect]
     Active Substance: CITALOPRAM HYDROBROMIDE
     Indication: DEPRESSION
     Dosage: 20 [MG/D ]
     Route: 064
  4. FOLIO                              /00349401/ [Concomitant]
     Active Substance: CYANOCOBALAMIN\FOLIC ACID
     Indication: PROPHYLAXIS OF NEURAL TUBE DEFECT
     Dosage: 0.4 [MG/D ] 1 TRIMESTER
     Route: 064
  5. PARACETAMOL [Concomitant]
     Active Substance: ACETAMINOPHEN
     Indication: PYREXIA
     Dosage: 500 [MG/D ]/ DURING 1ST AND 3RD TRIMESTER FOR 7 DAYS EACH
     Route: 064
  6. PROGESTERON [Concomitant]
     Active Substance: PROGESTERONE
     Indication: PROPHYLAXIS OF ABORTION
     Dosage: 200 [MG/D ] 2 TRIMESTER
     Route: 064

REACTIONS (2)
  - Foetal exposure during pregnancy [Recovered/Resolved]
  - Cataract congenital [Not Recovered/Not Resolved]
